FAERS Safety Report 6871424-8 (Version None)
Quarter: 2010Q3

REPORT INFORMATION
  Report Type: 
  Country: None (occurrence: None)
  Receive Date: 20100723
  Receipt Date: 20100712
  Transmission Date: 20110219
  Serious: Yes (Other)
  Sender: FDA-Public Use
  Company Number: US-PFIZER INC-2010086971

PATIENT
  Sex: Male
  Weight: 81.6 kg

DRUGS (2)
  1. CHANTIX [Suspect]
     Indication: TOBACCO ABUSE
     Dosage: 0.5 MG, 1X/DAY
     Route: 048
     Dates: start: 20100601, end: 20100101
  2. CHANTIX [Suspect]
     Dosage: 1 MG, UNK
     Dates: start: 20100101, end: 20100101

REACTIONS (8)
  - ABNORMAL BEHAVIOUR [None]
  - ANGER [None]
  - DECREASED APPETITE [None]
  - HOSTILITY [None]
  - IRRITABILITY [None]
  - MEMORY IMPAIRMENT [None]
  - NAUSEA [None]
  - PARANOIA [None]
